FAERS Safety Report 7015279-X (Version None)
Quarter: 2010Q3

REPORT INFORMATION
  Report Type: 
  Country: None (occurrence: None)
  Receive Date: 20100927
  Receipt Date: 20100916
  Transmission Date: 20110219
  Serious: Yes (Hospitalization)
  Sender: FDA-Public Use
  Company Number: FR-PURDUE-GBR-2010-0007092

PATIENT
  Sex: Female

DRUGS (16)
  1. OXYCODONE HCL [Suspect]
     Indication: PAIN
     Dosage: 3 MG, Q6H PRN
     Dates: start: 20100821, end: 20100823
  2. MORPHINE SULFATE [Suspect]
     Indication: PAIN
     Dosage: 15 MG, DAILY
     Route: 042
     Dates: start: 20100819, end: 20100821
  3. MORPHINE SULFATE [Suspect]
     Dosage: 2 MG, UNK
  4. CODOLIPRANE [Suspect]
     Indication: PAIN
     Dosage: 4 DF, DAILY
     Route: 048
     Dates: start: 20100823, end: 20100825
  5. TAVANIC [Suspect]
     Indication: PYELONEPHRITIS
     Dosage: 500 MG, DAILY
     Dates: start: 20100821, end: 20100827
  6. IXPRIM [Suspect]
     Indication: PAIN
     Dosage: UNK
     Route: 048
     Dates: start: 20100816, end: 20100817
  7. TOPALGIC                           /00599202/ [Suspect]
     Indication: PAIN
     Dosage: UNK
     Route: 042
     Dates: start: 20100817, end: 20100819
  8. VASTAREL [Concomitant]
  9. CORTANCYL [Concomitant]
     Dosage: 5 MG, DAILY
  10. PEPDINE [Concomitant]
     Dosage: 40 MG, UNK
  11. MOTILIUM                           /00498201/ [Concomitant]
     Dosage: UNK
  12. XANAX [Concomitant]
     Dosage: 0.25 MG, NOCTE
  13. CORDARONE [Concomitant]
  14. EVISTA [Concomitant]
  15. SEROPLEX [Concomitant]
     Dosage: UNK
  16. ZOPICLONE [Concomitant]
     Dosage: 7.5 UNK, DAILY

REACTIONS (38)
  - ABDOMINAL PAIN [None]
  - ABNORMAL BEHAVIOUR [None]
  - BLISTER [None]
  - BLOOD ALBUMIN DECREASED [None]
  - BLOOD CALCIUM DECREASED [None]
  - BLOOD GLUCOSE INCREASED [None]
  - BLOOD PRESSURE SYSTOLIC INCREASED [None]
  - BLOOD SODIUM INCREASED [None]
  - CARDIOMEGALY [None]
  - CEREBRAL ATROPHY [None]
  - CEREBRAL HYGROMA [None]
  - CONDITION AGGRAVATED [None]
  - CONFUSIONAL STATE [None]
  - DISTURBANCE IN SOCIAL BEHAVIOUR [None]
  - DRUG INTOLERANCE [None]
  - ESCHAR [None]
  - EXTRASYSTOLES [None]
  - FAECALOMA [None]
  - HALLUCINATION [None]
  - HYPOPROTEINAEMIA [None]
  - INAPPROPRIATE AFFECT [None]
  - INFECTION [None]
  - LEUKOENCEPHALOPATHY [None]
  - LUNG DISORDER [None]
  - MALNUTRITION [None]
  - MENTAL DISORDER [None]
  - MULTIPLE-DRUG RESISTANCE [None]
  - OSTEOPOROSIS POSTMENOPAUSAL [None]
  - OXYGEN SATURATION DECREASED [None]
  - PERSECUTORY DELUSION [None]
  - PLEURISY [None]
  - PROTEUS INFECTION [None]
  - PYELONEPHRITIS [None]
  - RALES [None]
  - SKIN EXFOLIATION [None]
  - SUBDURAL HAEMATOMA [None]
  - URINARY RETENTION [None]
  - VITAMIN B12 INCREASED [None]
